FAERS Safety Report 4930987-X (Version None)
Quarter: 2006Q1

REPORT INFORMATION
  Report Type: 
  Country: None (occurrence: None)
  Receive Date: 20060227
  Receipt Date: 20060215
  Transmission Date: 20060701
  Serious: Yes (Hospitalization)
  Sender: FDA-Public Use
  Company Number: 2006020950

PATIENT
  Age: 78 Year
  Sex: Female

DRUGS (7)
  1. LYRICA [Suspect]
     Indication: NEURALGIA
     Dosage: 150 MG (75 MG, 2 IN 1 D), ORAL
     Route: 048
     Dates: start: 20060206, end: 20060209
  2. ORAL ANTIDIABETICS (ORAL ANTIDIABETICS) [Concomitant]
  3. DIAMICRON (GLICLAZIDE) [Concomitant]
  4. DAFLON (DIOSMIN) [Concomitant]
  5. RISIDON (METFORMIN HYDROCHLORIDE) [Concomitant]
  6. GLYBURIDE [Concomitant]
  7. TRIMETAZIDINE (TRIMETAZIDINE) [Concomitant]

REACTIONS (3)
  - BALANCE DISORDER [None]
  - DYSARTHRIA [None]
  - DYSSTASIA [None]
